FAERS Safety Report 18650041 (Version 11)
Quarter: 2024Q3

REPORT INFORMATION
  Report Type: Report from Study
  Country: CA (occurrence: CA)
  Receive Date: 20201222
  Receipt Date: 20240905
  Transmission Date: 20241017
  Serious: Yes (Life-Threatening, Hospitalization, Other)
  Sender: NOVARTIS
  Company Number: NVSC2020CA270252

PATIENT
  Age: 48 Year
  Sex: Female
  Weight: 43 kg

DRUGS (10)
  1. ILARIS [Suspect]
     Active Substance: CANAKINUMAB
     Indication: Muckle-Wells syndrome
     Dosage: 300 MG, Q4W
     Route: 058
     Dates: start: 20111101
  2. ILARIS [Suspect]
     Active Substance: CANAKINUMAB
     Dosage: 300 MG, Q4W
     Route: 058
     Dates: start: 20210114
  3. ILARIS [Suspect]
     Active Substance: CANAKINUMAB
     Dosage: 300 MG, Q2W
     Route: 058
  4. CEPHRADINE [Suspect]
     Active Substance: CEPHRADINE
     Indication: Product used for unknown indication
     Dosage: UNK
     Route: 065
  5. CANAKINUMAB [Concomitant]
     Active Substance: CANAKINUMAB
     Indication: Product used for unknown indication
     Dosage: UNK
     Route: 065
     Dates: start: 20110101
  6. KINERET [Concomitant]
     Active Substance: ANAKINRA
     Indication: Product used for unknown indication
     Dosage: 400 MG
     Route: 065
  7. LASIX [Concomitant]
     Active Substance: FUROSEMIDE
     Indication: Product used for unknown indication
     Dosage: 1 DOSAGE FORM, BID
     Route: 048
  8. VITAMIN D [Concomitant]
     Active Substance: VITAMIN D NOS
     Indication: Product used for unknown indication
     Dosage: UNK, QW, STRENGTH: 10000
     Route: 065
  9. ARANESP [Concomitant]
     Active Substance: DARBEPOETIN ALFA
     Indication: Product used for unknown indication
     Dosage: UNK, QW
     Route: 065
  10. LOPERAMIDE [Concomitant]
     Active Substance: LOPERAMIDE
     Indication: Product used for unknown indication
     Dosage: 1 DOSAGE FORM, BID
     Route: 065

REACTIONS (30)
  - Amyloidosis [Unknown]
  - Renal failure [Unknown]
  - Renal amyloidosis [Unknown]
  - Nephrotic syndrome [Unknown]
  - Renal tubular injury [Unknown]
  - Myocardial ischaemia [Unknown]
  - Deafness neurosensory [Unknown]
  - Gastrointestinal amyloidosis [Unknown]
  - Cerebrovascular accident [Unknown]
  - Pericardial effusion [Unknown]
  - Headache [Unknown]
  - Oropharyngeal pain [Unknown]
  - Drug hypersensitivity [Unknown]
  - Procedural nausea [Recovered/Resolved]
  - Arteriosclerosis [Unknown]
  - Osteopenia [Unknown]
  - Dyslipidaemia [Unknown]
  - Arthralgia [Not Recovered/Not Resolved]
  - Diarrhoea [Not Recovered/Not Resolved]
  - Urticaria [Unknown]
  - Arthritis [Unknown]
  - Benign neoplasm of thyroid gland [Unknown]
  - White blood cell count abnormal [Unknown]
  - Vomiting [Unknown]
  - Weight decreased [Unknown]
  - Mouth ulceration [Unknown]
  - Pleural effusion [Unknown]
  - Hyperglycaemia [Unknown]
  - Product use issue [Unknown]
  - Therapy partial responder [Unknown]

NARRATIVE: CASE EVENT DATE: 20210114
